FAERS Safety Report 16708226 (Version 1)
Quarter: 2019Q3

REPORT INFORMATION
  Report Type: Report from Study
  Country: None (occurrence: CO)
  Receive Date: 20190816
  Receipt Date: 20190816
  Transmission Date: 20191004
  Serious: Yes (Hospitalization, Other)
  Sender: FDA-Public Use
  Company Number: CO-ABBVIE-19K-036-2889812-00

PATIENT
  Age: 4 Month
  Sex: Male

DRUGS (1)
  1. SYNAGIS [Suspect]
     Active Substance: PALIVIZUMAB
     Indication: PREMATURE BABY
     Route: 030
     Dates: start: 20190514, end: 20190708

REACTIONS (1)
  - Umbilical hernia [Recovering/Resolving]

NARRATIVE: CASE EVENT DATE: 20190809
